FAERS Safety Report 7045729-4 (Version None)
Quarter: 2010Q4

REPORT INFORMATION
  Report Type: 
  Country: None (occurrence: None)
  Receive Date: 20101014
  Receipt Date: 20101008
  Transmission Date: 20110411
  Serious: Yes (Other)
  Sender: FDA-Public Use
  Company Number: CH-MERCK-1010USA01089

PATIENT
  Sex: Male

DRUGS (2)
  1. ISENTRESS [Suspect]
     Route: 048
  2. TRUVADA [Suspect]
     Route: 065

REACTIONS (1)
  - NEUROPATHY PERIPHERAL [None]
